FAERS Safety Report 5808000-1 (Version None)
Quarter: 2008Q3

REPORT INFORMATION
  Report Type: 
  Country: None (occurrence: None)
  Receive Date: 20080711
  Receipt Date: 20080701
  Transmission Date: 20090109
  Serious: Yes (Other)
  Sender: FDA-Public Use
  Company Number: JP-PFIZER INC-2008055252

PATIENT
  Sex: Female

DRUGS (2)
  1. ZITHROMAX [Suspect]
     Dosage: DAILY DOSE:500MG
     Route: 048
  2. DRUG, UNSPECIFIED [Concomitant]

REACTIONS (1)
  - HALLUCINATION [None]
